FAERS Safety Report 7038537-1 (Version None)
Quarter: 2010Q4

REPORT INFORMATION
  Report Type: 
  Country: None (occurrence: None)
  Receive Date: 20101011
  Receipt Date: 20100630
  Transmission Date: 20110411
  Serious: No
  Sender: FDA-Public Use
  Company Number: US-PFIZER INC-2010073768

PATIENT
  Sex: Male

DRUGS (2)
  1. GABAPENTIN [Suspect]
     Indication: DIABETIC NEUROPATHY
     Dosage: 100 MG, 2X/DAY
     Route: 048
     Dates: start: 20100604, end: 20100610
  2. GABAPENTIN [Suspect]
     Dosage: ONE CAPSULE THREE TIMES A DAY
     Route: 048
     Dates: start: 20100601

REACTIONS (1)
  - DRUG INEFFECTIVE [None]
